FAERS Safety Report 24164695 (Version 1)
Quarter: 2024Q3

REPORT INFORMATION
  Report Type: Report from Study
  Country: CA (occurrence: CA)
  Receive Date: 20240801
  Receipt Date: 20240801
  Transmission Date: 20241017
  Serious: Yes (Other)
  Sender: APELLIS PHARMACEUTICALS
  Company Number: CA-BIOVITRUM-2024-CA-010157

PATIENT

DRUGS (1)
  1. PEGCETACOPLAN [Suspect]
     Active Substance: PEGCETACOPLAN
     Indication: Paroxysmal nocturnal haemoglobinuria
     Dosage: ONE VIAL ONCE DAILY FOR 3 CONSECUTIVE DAYS THEN BACK TO ORIGINAL DOSE OF ONE VIAL EVERY 3 DAYS
     Route: 058
     Dates: start: 20190603

REACTIONS (3)
  - Haemolysis [Unknown]
  - Prescribed overdose [Unknown]
  - Infection [Unknown]
